FAERS Safety Report 23492512 (Version 1)
Quarter: 2024Q1

REPORT INFORMATION
  Report Type: Spontaneous
  Country: US (occurrence: US)
  Receive Date: 20240207
  Receipt Date: 20240207
  Transmission Date: 20240410
  Serious: No
  Sender: FDA-Public Use
  Company Number: US-ORG100014127-2023000690

PATIENT
  Age: 69 Year
  Sex: Female

DRUGS (3)
  1. LYSODREN [Suspect]
     Active Substance: MITOTANE
     Indication: Adrenal gland cancer
     Dosage: 500 MG: 2 TABLETS EVERY MORNING, 1 TABLET AT NIGHT FOR SEVEN DAYS
     Route: 048
     Dates: start: 20211020, end: 20211027
  2. LYSODREN [Suspect]
     Active Substance: MITOTANE
     Indication: Adrenal gland cancer
     Dosage: 500 MG: 4 TABLETS  EVERY MORNING AND 2 TABLETS AT NIGHT
     Route: 048
     Dates: start: 20211021
  3. LYSODREN [Suspect]
     Active Substance: MITOTANE
     Indication: Adrenal gland cancer
     Dosage: 500 MG: 5 TABLETS (2500 MG) TWICE DAILY
     Route: 048

REACTIONS (3)
  - Diarrhoea [Not Recovered/Not Resolved]
  - Vomiting [Unknown]
  - Product use complaint [Unknown]
